FAERS Safety Report 4627641-0 (Version None)
Quarter: 2005Q2

REPORT INFORMATION
  Report Type: 
  Country: None (occurrence: None)
  Receive Date: 20050401
  Receipt Date: 20050401
  Transmission Date: 20051028
  Serious: Yes (Hospitalization)
  Sender: FDA-Public Use
  Company Number: None

PATIENT
  Sex: Female

DRUGS (2)
  1. OMNIPAQUE 300 [Suspect]
     Indication: COMPUTERISED TOMOGRAM
     Dosage: INTRAVENOUS
     Route: 042
     Dates: start: 20050114, end: 20050114
  2. OMNIPAQUE 300 [Suspect]
     Indication: SCAN WITH CONTRAST
     Dosage: INTRAVENOUS
     Route: 042
     Dates: start: 20050114, end: 20050114

REACTIONS (3)
  - FEELING ABNORMAL [None]
  - SPEECH DISORDER [None]
  - THROAT TIGHTNESS [None]
